FAERS Safety Report 24876159 (Version 2)
Quarter: 2025Q1

REPORT INFORMATION
  Report Type: Report from Study
  Country: US (occurrence: US)
  Receive Date: 20250123
  Receipt Date: 20250320
  Transmission Date: 20250409
  Serious: Yes (Hospitalization, Other)
  Sender: BOEHRINGER INGELHEIM
  Company Number: US-BoehringerIngelheim-2024-BI-068874

PATIENT
  Age: 65 Year
  Sex: Male

DRUGS (3)
  1. OFEV [Suspect]
     Active Substance: NINTEDANIB
     Indication: Idiopathic pulmonary fibrosis
     Dates: start: 20241029
  2. OFEV [Suspect]
     Active Substance: NINTEDANIB
  3. XARELTO [Concomitant]
     Active Substance: RIVAROXABAN
     Indication: Product used for unknown indication

REACTIONS (17)
  - Fall [Unknown]
  - Rib fracture [Unknown]
  - Spinal fracture [Unknown]
  - Upper limb fracture [Unknown]
  - Atrial fibrillation [Unknown]
  - Skin cancer [Unknown]
  - Medical device site haemorrhage [Not Recovered/Not Resolved]
  - Rash [Unknown]
  - Dyspnoea [Not Recovered/Not Resolved]
  - Fatigue [Unknown]
  - Contrast media allergy [Unknown]
  - Weight decreased [Unknown]
  - Joint injury [Unknown]
  - Short-bowel syndrome [Unknown]
  - Diarrhoea [Unknown]
  - Intentional product use issue [Unknown]
  - Nephrolithiasis [Unknown]

NARRATIVE: CASE EVENT DATE: 20241208
